FAERS Safety Report 11324176 (Version 1)
Quarter: 2015Q3

REPORT INFORMATION
  Report Type: Spontaneous
  Country: US (occurrence: US)
  Receive Date: 20150730
  Receipt Date: 20150730
  Transmission Date: 20151125
  Serious: No
  Sender: FDA-Public Use
  Company Number: US-BAYER-2015-390146

PATIENT
  Age: 71 Year
  Sex: Female
  Weight: 63.49 kg

DRUGS (1)
  1. CLARITIN [Suspect]
     Active Substance: LORATADINE
     Indication: SEASONAL ALLERGY
     Dosage: 1/2 DF, PRN
     Route: 048
     Dates: start: 201406, end: 20150727

REACTIONS (1)
  - Product use issue [None]
